FAERS Safety Report 4756598-7 (Version None)
Quarter: 2005Q3

REPORT INFORMATION
  Report Type: 
  Country: None (occurrence: None)
  Receive Date: 20050825
  Receipt Date: 20050511
  Transmission Date: 20060218
  Serious: Yes (Hospitalization)
  Sender: FDA-Public Use
  Company Number: WAES 0504USA03650

PATIENT
  Sex: Female

DRUGS (1)
  1. VYTORIN [Suspect]
     Dosage: PO
     Route: 048

REACTIONS (5)
  - ADVERSE EVENT [None]
  - DRUG INTERACTION [None]
  - PAIN [None]
  - PALPITATIONS [None]
  - PARAESTHESIA [None]
